FAERS Safety Report 14386764 (Version 1)
Quarter: 2018Q1

REPORT INFORMATION
  Report Type: Spontaneous
  Country: US (occurrence: US)
  Receive Date: 20180115
  Receipt Date: 20180115
  Transmission Date: 20180509
  Serious: Yes (Other)
  Sender: FDA-Public Use
  Company Number: US-SA-2017SA115901

PATIENT
  Age: 54 Year
  Sex: Female
  Weight: 49.98 kg

DRUGS (6)
  1. NEOSAR [Concomitant]
     Active Substance: CYCLOPHOSPHAMIDE
  2. TAXOTERE [Suspect]
     Active Substance: DOCETAXEL
     Route: 051
     Dates: start: 2010, end: 2010
  3. DOXIL [Concomitant]
     Active Substance: DOXORUBICIN HYDROCHLORIDE
  4. TAXOTERE [Suspect]
     Active Substance: DOCETAXEL
     Route: 051
     Dates: start: 20100624, end: 20100624
  5. TAXOTERE [Suspect]
     Active Substance: DOCETAXEL
     Route: 051
     Dates: start: 20101007, end: 20101007
  6. ADRIAMYCIN [Concomitant]
     Active Substance: DOXORUBICIN HYDROCHLORIDE

REACTIONS (4)
  - Anxiety [Unknown]
  - Alopecia [Not Recovered/Not Resolved]
  - Pain [Unknown]
  - Emotional distress [Unknown]
